FAERS Safety Report 17419811 (Version 1)
Quarter: 2020Q1

REPORT INFORMATION
  Report Type: Spontaneous
  Country: AT (occurrence: AT)
  Receive Date: 20200214
  Receipt Date: 20200214
  Transmission Date: 20200409
  Serious: Yes (Other)
  Sender: FDA-Public Use
  Company Number: AT-PFIZER INC-2020064221

PATIENT
  Age: 40 Year
  Sex: Male

DRUGS (1)
  1. DALACIN C [Suspect]
     Active Substance: CLINDAMYCIN PHOSPHATE
     Dosage: UNK
     Route: 048
     Dates: start: 20190807, end: 20190811

REACTIONS (4)
  - Rash [Unknown]
  - Eosinophil count abnormal [Unknown]
  - Type IV hypersensitivity reaction [Unknown]
  - Alanine aminotransferase increased [Unknown]

NARRATIVE: CASE EVENT DATE: 20190811
